FAERS Safety Report 9498337 (Version 1)
Quarter: 2013Q3

REPORT INFORMATION
  Report Type: Spontaneous
  Country: FR (occurrence: FR)
  Receive Date: 20130904
  Receipt Date: 20130904
  Transmission Date: 20140515
  Serious: Yes (Hospitalization, Disabling, Other)
  Sender: FDA-Public Use
  Company Number: FR-PFIZER INC-2013247600

PATIENT
  Age: 61 Year
  Sex: Female

DRUGS (13)
  1. ARACYTINE [Suspect]
     Indication: ACUTE MYELOID LEUKAEMIA
     Dosage: UNK
     Dates: start: 201211
  2. ARACYTINE [Suspect]
     Dosage: UNK
     Dates: end: 20121228
  3. VFEND [Suspect]
     Dosage: UNK
  4. ZAVEDOS [Suspect]
     Indication: ACUTE MYELOID LEUKAEMIA
     Dosage: UNK
     Dates: start: 201211
  5. ZAVEDOS [Suspect]
     Dosage: UNK
     Dates: end: 20121228
  6. INNOHEP [Suspect]
     Indication: PHLEBITIS
     Dosage: 14000 IU, 1X/DAY
     Route: 058
     Dates: start: 201209, end: 20130123
  7. BELUSTINE [Suspect]
     Indication: ACUTE MYELOID LEUKAEMIA
     Dosage: UNK
     Dates: start: 201211
  8. BELUSTINE [Suspect]
     Dosage: UNK
     Dates: end: 20121228
  9. CEFTRIAXONE [Concomitant]
     Dosage: UNK
  10. DIFFU K [Concomitant]
     Dosage: UNK
  11. PRIMPERAN [Concomitant]
     Dosage: UNK
  12. TOPALGIC [Concomitant]
     Dosage: UNK
  13. VANCOMYCIN MYLAN [Concomitant]
     Dosage: UNK

REACTIONS (8)
  - Febrile bone marrow aplasia [Unknown]
  - Leukopenia [Unknown]
  - Subdural haematoma [Recovered/Resolved with Sequelae]
  - Subarachnoid haemorrhage [Recovered/Resolved with Sequelae]
  - Thrombocytopenia [Not Recovered/Not Resolved]
  - Convulsion [Unknown]
  - Disturbance in attention [Unknown]
  - Motor dysfunction [Recovered/Resolved with Sequelae]
